FAERS Safety Report 10014405 (Version 1)
Quarter: 2014Q1

REPORT INFORMATION
  Report Type: Spontaneous
  Country: DE (occurrence: DE)
  Receive Date: 20140317
  Receipt Date: 20140317
  Transmission Date: 20141002
  Serious: Yes (Other)
  Sender: FDA-Public Use
  Company Number: DE-BRISTOL-MYERS SQUIBB COMPANY-20426979

PATIENT
  Age: 20 Year
  Sex: Female

DRUGS (2)
  1. ORENCIA [Suspect]
     Indication: RHEUMATOID ARTHRITIS
     Dosage: SYRINGE ?ONGOING
     Dates: start: 2013
  2. ARAVA [Concomitant]

REACTIONS (1)
  - Surgery [Not Recovered/Not Resolved]
